FAERS Safety Report 9149440 (Version 1)
Quarter: 2013Q1

REPORT INFORMATION
  Report Type: Spontaneous
  Country: US (occurrence: None)
  Receive Date: 20130301
  Receipt Date: 20130301
  Transmission Date: 20140127
  Serious: Yes (Other)
  Sender: FDA-Public Use
  Company Number: None

PATIENT
  Age: 12 Year
  Sex: Female
  Weight: 56.7 kg

DRUGS (1)
  1. MONTELUKAST [Suspect]
     Indication: ASTHMA
     Dosage: 10 MG 1X DAILY PO
     Route: 048
     Dates: start: 20121001, end: 20130215

REACTIONS (9)
  - Depressed mood [None]
  - Decreased appetite [None]
  - Weight decreased [None]
  - Mood altered [None]
  - Abnormal behaviour [None]
  - Lethargy [None]
  - Sleep disorder [None]
  - Fatigue [None]
  - Disturbance in attention [None]
